FAERS Safety Report 25519119 (Version 3)
Quarter: 2025Q3

REPORT INFORMATION
  Report Type: Spontaneous
  Country: EU (occurrence: EU)
  Receive Date: 20250704
  Receipt Date: 20250826
  Transmission Date: 20251021
  Serious: Yes (Other)
  Sender: ALIMERA
  Company Number: EU-ALIMERA SCIENCES LIMITED-CZ-A16013-25-000233

PATIENT

DRUGS (2)
  1. ILUVIEN [Suspect]
     Active Substance: FLUOCINOLONE ACETONIDE
     Indication: Diabetic retinal oedema
     Dosage: 0.25 MICROGRAM, QD - LEFT EYE
     Route: 031
     Dates: start: 20250625, end: 20250625
  2. TOBRADEX [Concomitant]
     Active Substance: DEXAMETHASONE\TOBRAMYCIN
     Indication: Product used for unknown indication
     Dosage: 1 DROP, TID - LEFT EYE
     Route: 031
     Dates: start: 20250626

REACTIONS (6)
  - Choroidal detachment [Recovered/Resolved]
  - Injection site discharge [Recovered/Resolved]
  - Eye injury [Recovered/Resolved]
  - Hypotony of eye [Recovered/Resolved]
  - Drug dose omission by device [Unknown]
  - Device failure [Unknown]

NARRATIVE: CASE EVENT DATE: 20250625
